FAERS Safety Report 25061512 (Version 2)
Quarter: 2025Q2

REPORT INFORMATION
  Report Type: Spontaneous
  Country: US (occurrence: US)
  Receive Date: 20250311
  Receipt Date: 20250407
  Transmission Date: 20250717
  Serious: No
  Sender: AMGEN
  Company Number: US-AMGEN-USASP2025043151

PATIENT
  Age: 56 Year
  Sex: Female

DRUGS (21)
  1. OTEZLA [Suspect]
     Active Substance: APREMILAST
     Indication: Psoriatic arthropathy
     Route: 048
     Dates: start: 20250307
  2. OTEZLA [Suspect]
     Active Substance: APREMILAST
     Route: 048
  3. OTEZLA [Suspect]
     Active Substance: APREMILAST
     Dosage: 30 MILLIGRAM, BID
     Route: 048
  4. BETAMETHASONE DIPROPIONATE [Concomitant]
     Active Substance: BETAMETHASONE DIPROPIONATE
  5. BETAMETHASONE DIPROPIONATE [Concomitant]
     Active Substance: BETAMETHASONE DIPROPIONATE
  6. CALCIPOTRIENE [Concomitant]
     Active Substance: CALCIPOTRIENE
  7. CALCITRIOL [Concomitant]
     Active Substance: CALCITRIOL
  8. CLOBETASOL [Concomitant]
     Active Substance: CLOBETASOL
  9. FLUOCINOLONE ACETONIDE [Concomitant]
     Active Substance: FLUOCINOLONE ACETONIDE
  10. FOLIC ACID [Concomitant]
     Active Substance: FOLIC ACID
  11. HUMIRA [Concomitant]
     Active Substance: ADALIMUMAB
  12. LOVASTATIN [Concomitant]
     Active Substance: LOVASTATIN
  13. MELOXICAM [Concomitant]
     Active Substance: MELOXICAM
  14. METHOTREXATE [Concomitant]
     Active Substance: METHOTREXATE
  15. METHYLPREDNISOLONE [Concomitant]
     Active Substance: METHYLPREDNISOLONE
  16. VITAMINS [Concomitant]
     Active Substance: VITAMINS
  17. TAZORAC [Concomitant]
     Active Substance: TAZAROTENE
  18. TRIAMCINOLONE [Concomitant]
     Active Substance: TRIAMCINOLONE
  19. VITAMIN C [Concomitant]
     Active Substance: ASCORBIC ACID
  20. ZORYVE [Concomitant]
     Active Substance: ROFLUMILAST
  21. LOSARTAN POTASSIUM [Concomitant]
     Active Substance: LOSARTAN POTASSIUM

REACTIONS (3)
  - Rash [Not Recovered/Not Resolved]
  - Pain [Not Recovered/Not Resolved]
  - Skin irritation [Not Recovered/Not Resolved]

NARRATIVE: CASE EVENT DATE: 20250301
